FAERS Safety Report 9206134 (Version 1)
Quarter: 2013Q1

REPORT INFORMATION
  Report Type: Spontaneous
  Country: US (occurrence: None)
  Receive Date: 20120709
  Receipt Date: 20120709
  Transmission Date: 20140127
  Serious: Yes (Disabling, Other)
  Sender: FDA-Public Use
  Company Number: PHHY2010US35943

PATIENT
  Age: 71 Year
  Sex: Female
  Weight: 87.1 kg

DRUGS (13)
  1. GLEEVEC (IMATINIB) UNKNOWN [Suspect]
     Indication: GASTROINTESTINAL STROMAL TUMOUR
     Route: 048
     Dates: start: 20100327
  2. GLEEVEC (IMATINIB) UNKNOWN [Suspect]
     Indication: RECTAL CANCER
     Route: 048
     Dates: start: 20100327
  3. IRON (IRON) TABLET [Concomitant]
  4. METFORMIN (METFORMIN) [Concomitant]
  5. GLIPIZIDE (GLIPIZIDE) [Concomitant]
  6. TRICOR (FENOFIBRATE) [Concomitant]
  7. BENAZEPRIL (BENAZEPRIL) [Concomitant]
  8. SENNA (SENNA, SENNA ALEXANDRINA) [Concomitant]
  9. SIMVASTATIN (SIMVASTATIN) [Concomitant]
  10. BABY ASPIRIN (ACETYLSALICYLIC ACID) [Concomitant]
  11. VITAMINS (NO INGREDIENTS/SUBSTANCES) [Concomitant]
  12. ZOCOR (SIMVASTATIN) [Concomitant]
  13. GINGER (ZINGIBER OFFCINALE RHIZOME) [Concomitant]

REACTIONS (8)
  - Diarrhoea [None]
  - Nausea [None]
  - Oedema [None]
  - Vomiting [None]
  - Constipation [None]
  - Anaemia [None]
  - Fluid retention [None]
  - Muscle spasms [None]
